FAERS Safety Report 6868961-9 (Version None)
Quarter: 2010Q3

REPORT INFORMATION
  Report Type: 
  Country: None (occurrence: None)
  Receive Date: 20100722
  Receipt Date: 20080820
  Transmission Date: 20110219
  Serious: No
  Sender: FDA-Public Use
  Company Number: US-PFIZER INC-2008054138

PATIENT
  Sex: Male
  Weight: 113.6 kg

DRUGS (5)
  1. CHANTIX [Suspect]
     Indication: SMOKING CESSATION THERAPY
     Dates: start: 20080610
  2. OMEPRAZOLE [Concomitant]
  3. DIOVANE [Concomitant]
  4. GLIMEPIRIDE [Concomitant]
  5. METFORMIN [Concomitant]

REACTIONS (3)
  - DEPRESSION [None]
  - NIGHTMARE [None]
  - POOR QUALITY SLEEP [None]
